FAERS Safety Report 24899950 (Version 9)
Quarter: 2025Q2

REPORT INFORMATION
  Report Type: Spontaneous
  Country: JP (occurrence: JP)
  Receive Date: 20250129
  Receipt Date: 20250608
  Transmission Date: 20250716
  Serious: No
  Sender: GALDERMA
  Company Number: JP-GALDERMA-JP2025000578

PATIENT

DRUGS (15)
  1. NEMOLIZUMAB [Suspect]
     Active Substance: NEMOLIZUMAB
     Indication: Dermatitis atopic
     Route: 058
     Dates: start: 20240815, end: 20240815
  2. NEMOLIZUMAB [Suspect]
     Active Substance: NEMOLIZUMAB
     Route: 058
     Dates: start: 20240912, end: 20240912
  3. NEMOLIZUMAB [Suspect]
     Active Substance: NEMOLIZUMAB
     Route: 058
     Dates: start: 20241010, end: 20241010
  4. NEMOLIZUMAB [Suspect]
     Active Substance: NEMOLIZUMAB
     Route: 058
     Dates: start: 20241128, end: 20241128
  5. PROTOPIC [Concomitant]
     Active Substance: TACROLIMUS
     Indication: Dermatitis atopic
     Route: 061
     Dates: start: 20150424
  6. PROTOPIC [Concomitant]
     Active Substance: TACROLIMUS
     Route: 061
     Dates: start: 20240912
  7. ALLEGRA [Concomitant]
     Active Substance: FEXOFENADINE HYDROCHLORIDE
     Indication: Pruritus
     Route: 048
     Dates: start: 20240523, end: 20240912
  8. ALLELOCK [Concomitant]
     Active Substance: OLOPATADINE HYDROCHLORIDE
     Indication: Pruritus
     Route: 048
     Dates: start: 20240523, end: 20240912
  9. RUPAFIN [Concomitant]
     Active Substance: RUPATADINE FUMARATE
     Indication: Pruritus
     Route: 048
     Dates: start: 20240912, end: 20241128
  10. Moizerto [Concomitant]
     Indication: Dermatitis atopic
     Route: 061
     Dates: start: 20150424
  11. Moizerto [Concomitant]
     Route: 061
     Dates: start: 20240523
  12. ACETAMINOPHEN [Concomitant]
     Active Substance: ACETAMINOPHEN
     Indication: Headache
     Route: 048
  13. HERBALS [Concomitant]
     Active Substance: HERBALS
     Indication: Headache
     Route: 048
  14. Betnevate [Concomitant]
     Indication: Dermatitis atopic
     Route: 061
     Dates: start: 20150424
  15. Betnevate [Concomitant]
     Route: 061
     Dates: start: 20240912

REACTIONS (5)
  - Hyperprolactinaemia [Recovering/Resolving]
  - Lactation disorder [Recovering/Resolving]
  - Malaise [Recovered/Resolved]
  - Nipple inflammation [Recovering/Resolving]
  - Dermatitis atopic [Recovered/Resolved]

NARRATIVE: CASE EVENT DATE: 20240828
